FAERS Safety Report 12415322 (Version 2)
Quarter: 2016Q3

REPORT INFORMATION
  Report Type: Spontaneous
  Country: US (occurrence: US)
  Receive Date: 20160530
  Receipt Date: 20160804
  Transmission Date: 20161109
  Serious: No
  Sender: FDA-Public Use
  Company Number: US-PFIZER INC-2016253810

PATIENT
  Sex: Female

DRUGS (4)
  1. ELIQUIS [Concomitant]
     Active Substance: APIXABAN
     Dosage: UNK
  2. FLUCONAZOL [Concomitant]
     Active Substance: FLUCONAZOLE
     Indication: INFECTION
     Dosage: UNK
  3. VAGIFEM [Concomitant]
     Active Substance: ESTRADIOL
     Dosage: UNK
  4. TIKOSYN [Suspect]
     Active Substance: DOFETILIDE
     Dosage: UNK

REACTIONS (2)
  - Migraine [Unknown]
  - Headache [Unknown]
